FAERS Safety Report 12639556 (Version 1)
Quarter: 2016Q3

REPORT INFORMATION
  Report Type: Spontaneous
  Country: US (occurrence: None)
  Receive Date: 20160809
  Receipt Date: 20160809
  Transmission Date: 20161109
  Serious: Yes (Death)
  Sender: FDA-Public Use
  Company Number: None

PATIENT
  Age: 19 Year
  Sex: Male

DRUGS (4)
  1. QUETIAPINE. [Suspect]
     Active Substance: QUETIAPINE
  2. MITRAGYNINE [Suspect]
     Active Substance: MITRAGYNINE
  3. ALCOHOL. [Suspect]
     Active Substance: ALCOHOL
  4. ZOLPIDEM [Suspect]
     Active Substance: ZOLPIDEM\ZOLPIDEM TARTRATE

REACTIONS (6)
  - Wound [None]
  - Asphyxia [None]
  - Haemorrhage [None]
  - Fracture [None]
  - Toxicity to various agents [None]
  - Completed suicide [None]

NARRATIVE: CASE EVENT DATE: 20150914
